FAERS Safety Report 9322659 (Version 3)
Quarter: 2013Q3

REPORT INFORMATION
  Report Type: Report from Study
  Country: US (occurrence: US)
  Receive Date: 20130601
  Receipt Date: 20130717
  Transmission Date: 20140515
  Serious: Yes (Hospitalization)
  Sender: FDA-Public Use
  Company Number: US-009507513-1305USA014800

PATIENT
  Age: 63 Year
  Sex: Male
  Weight: 95 kg

DRUGS (17)
  1. BOCEPREVIR [Suspect]
     Indication: HEPATITIS C
     Dosage: 800 MG, Q8H
     Route: 048
     Dates: start: 20130408, end: 20130522
  2. RIBAVIRIN [Suspect]
     Indication: HEPATITIS C
     Dosage: 400 MG MORNING, 600 MG EVENING, QD
     Route: 048
     Dates: start: 20130318, end: 20130522
  3. PEGINTERFERON ALFA-2B [Suspect]
     Indication: HEPATITIS C
     Dosage: 150 G, QW
     Route: 058
     Dates: start: 20130318, end: 20130520
  4. ANDROGEL [Concomitant]
     Dosage: 5 G, QD
     Route: 061
     Dates: start: 20070523
  5. VITAMINS (UNSPECIFIED) [Concomitant]
     Dosage: 1 TABLET, QD
     Route: 048
     Dates: start: 20030401
  6. NAPROSYN [Concomitant]
     Dosage: 375 MG, TID
     Route: 048
     Dates: start: 20111214
  7. NORVASC [Concomitant]
     Dosage: 5 MG, QD
     Route: 048
     Dates: start: 20090120
  8. IBUPROFEN [Concomitant]
     Dosage: 600 MG, Q8H PRN
     Route: 048
     Dates: start: 20050531
  9. PRAVACHOL [Concomitant]
     Dosage: 20 MG, HS
     Route: 048
     Dates: start: 20030102
  10. ATAZANAVIR [Concomitant]
     Dosage: 300 MG, QD
     Route: 048
     Dates: start: 20050531
  11. RITONAVIR [Concomitant]
     Dosage: 100 MG, QD
     Route: 048
     Dates: start: 20050531
  12. TRUVADA [Concomitant]
     Dosage: 200/300 MG
     Route: 048
     Dates: start: 20050531
  13. CALCIUM CARBONATE [Concomitant]
     Dosage: 500 MG, PRN
     Route: 048
     Dates: start: 20130326
  14. DIFLUCAN [Concomitant]
     Indication: ORAL CANDIDIASIS
  15. NYSTATIN [Concomitant]
  16. REYATAZ [Concomitant]
  17. TONOCARD [Concomitant]

REACTIONS (1)
  - Syncope [Recovered/Resolved]
